FAERS Safety Report 16970160 (Version 1)
Quarter: 2019Q4

REPORT INFORMATION
  Report Type: Spontaneous
  Country: US (occurrence: US)
  Receive Date: 20190911
  Receipt Date: 20190911
  Transmission Date: 20200122
  Serious: Yes (Hospitalization)
  Sender: FDA-Public Use
  Company Number: None

PATIENT
  Age: 56 Year
  Sex: Male

DRUGS (12)
  1. NITROGLYCERIN. [Concomitant]
     Active Substance: NITROGLYCERIN
  2. PANTOPRAZOLE [Concomitant]
     Active Substance: PANTOPRAZOLE
  3. CELECOXIB. [Concomitant]
     Active Substance: CELECOXIB
  4. METOPROLOL. [Concomitant]
     Active Substance: METOPROLOL
  5. RISEDRONATE [Concomitant]
     Active Substance: RISEDRONATE SODIUM
  6. CYCLOBENZAPRINE. [Concomitant]
     Active Substance: CYCLOBENZAPRINE
  7. LOSARTAN. [Concomitant]
     Active Substance: LOSARTAN
  8. COLCHICINE. [Concomitant]
     Active Substance: COLCHICINE
  9. ATORVASTATIN [Concomitant]
     Active Substance: ATORVASTATIN
  10. COSENTYX [Suspect]
     Active Substance: SECUKINUMAB
     Indication: PSORIASIS
     Route: 058
     Dates: start: 20190104
  11. AMLODIPINE [Concomitant]
     Active Substance: AMLODIPINE BESYLATE
  12. SULFASALAZINE. [Concomitant]
     Active Substance: SULFASALAZINE

REACTIONS (1)
  - Post procedural infection [None]

NARRATIVE: CASE EVENT DATE: 20190823
